FAERS Safety Report 5256036-4 (Version None)
Quarter: 2007Q1

REPORT INFORMATION
  Report Type: 
  Country: None (occurrence: None)
  Receive Date: 20070302
  Receipt Date: 20070302
  Transmission Date: 20070707
  Serious: Yes (Hospitalization)
  Sender: FDA-Public Use
  Company Number: None

PATIENT
  Age: 77 Year
  Sex: Female
  Weight: 90.7194 kg

DRUGS (12)
  1. TEMOZOLOMIDE [Suspect]
     Indication: METASTATIC MALIGNANT MELANOMA
     Dosage: DAILY
  2. SUNITINIB [Suspect]
     Indication: METASTATIC MALIGNANT MELANOMA
     Dosage: DAILY
  3. SKELAXIN [Concomitant]
  4. CLARINEX [Concomitant]
  5. DIOVAN [Concomitant]
  6. SEREVENT [Concomitant]
  7. PEPCID [Concomitant]
  8. QUININE [Concomitant]
  9. NEXIUM [Concomitant]
  10. INDAPIMIDE [Concomitant]
  11. MOBIC [Concomitant]
  12. AZMACORT [Concomitant]

REACTIONS (2)
  - DIARRHOEA [None]
  - MUCOSAL INFLAMMATION [None]
